FAERS Safety Report 11510788 (Version 1)
Quarter: 2015Q3

REPORT INFORMATION
  Report Type: Spontaneous
  Country: US (occurrence: US)
  Receive Date: 20150915
  Receipt Date: 20150915
  Transmission Date: 20151125
  Serious: No
  Sender: FDA-Public Use
  Company Number: US-MYLANLABS-2015M1024786

PATIENT
  Age: 66 Year
  Sex: Female
  Weight: 63.49 kg

DRUGS (2)
  1. POTASSIUM CHLORIDE EXTENDED-RELEASE TABLETS, USP [Suspect]
     Active Substance: POTASSIUM CHLORIDE
     Indication: SUPPLEMENTATION THERAPY
     Dosage: 40 MEQ, QD
     Route: 048
     Dates: start: 20150720
  2. INSULIN [Concomitant]
     Active Substance: INSULIN NOS
     Indication: DIABETES MELLITUS
     Dosage: UNK

REACTIONS (1)
  - Blood glucose increased [Not Recovered/Not Resolved]

NARRATIVE: CASE EVENT DATE: 20150720
